FAERS Safety Report 16288057 (Version 1)
Quarter: 2019Q2

REPORT INFORMATION
  Report Type: Report from Study
  Country: US (occurrence: US)
  Receive Date: 20190508
  Receipt Date: 20190508
  Transmission Date: 20190711
  Serious: Yes (Hospitalization)
  Sender: FDA-Public Use
  Company Number: US-GILEAD-2019-0406625

PATIENT
  Age: 71 Year
  Sex: Female

DRUGS (1)
  1. AMBRISENTAN [Suspect]
     Active Substance: AMBRISENTAN
     Indication: PRODUCT USED FOR UNKNOWN INDICATION
     Dosage: 10 MG
     Route: 065
     Dates: start: 20190308, end: 20190504

REACTIONS (9)
  - Condition aggravated [Unknown]
  - Weight increased [Unknown]
  - Chills [Unknown]
  - Cough [Unknown]
  - Rash [Unknown]
  - Swelling [Unknown]
  - Nasal congestion [Unknown]
  - Fatigue [Unknown]
  - Dyspnoea [Unknown]
